FAERS Safety Report 8785128 (Version 1)
Quarter: 2012Q4

REPORT INFORMATION
  Report Type: Spontaneous
  Country: JP (occurrence: None)
  Receive Date: 20120829
  Receipt Date: 20120829
  Transmission Date: 20130627
  Serious: Yes (Hospitalization)
  Sender: FDA-Public Use
  Company Number: DSA_59062_2012

PATIENT
  Age: 68 Year
  Sex: Male

DRUGS (2)
  1. METRONIDAZOLE (METRONIDAZOLE) [Suspect]
  2. CLINDAMYCIN [Concomitant]

REACTIONS (3)
  - Neurotoxicity [None]
  - Toxic encephalopathy [None]
  - Hepatic encephalopathy [None]
